FAERS Safety Report 11394553 (Version 1)
Quarter: 2015Q3

REPORT INFORMATION
  Report Type: Report from Study
  Country: US (occurrence: US)
  Receive Date: 20150819
  Receipt Date: 20150819
  Transmission Date: 20151125
  Serious: Yes (Hospitalization, Other)
  Sender: FDA-Public Use
  Company Number: US-AMGEN-USASL2015083732

PATIENT
  Age: 62 Year
  Sex: Male

DRUGS (1)
  1. ENBREL [Suspect]
     Active Substance: ETANERCEPT
     Indication: PSORIATIC ARTHROPATHY
     Dosage: 50 MG, QWK
     Route: 065
     Dates: start: 2015, end: 2015

REACTIONS (6)
  - Sensory loss [Recovered/Resolved]
  - Infection [Recovered/Resolved]
  - Immune system disorder [Recovered/Resolved]
  - Pericarditis [Recovered/Resolved]
  - Tooth abscess [Recovered/Resolved]
  - Gingival erosion [Recovered/Resolved]

NARRATIVE: CASE EVENT DATE: 2015
